FAERS Safety Report 9021570 (Version 1)
Quarter: 2013Q1

REPORT INFORMATION
  Report Type: Spontaneous
  Country: US (occurrence: US)
  Receive Date: 20130119
  Receipt Date: 20130119
  Transmission Date: 20140127
  Serious: Yes (Death)
  Sender: FDA-Public Use
  Company Number: US-UCBSA-075270

PATIENT
  Age: 38 Year
  Sex: Female

DRUGS (3)
  1. ALPRAZOLAM [Suspect]
  2. HYDROMORPHONE [Suspect]
  3. ETHANOL [Suspect]

REACTIONS (1)
  - Toxicity to various agents [Fatal]
